FAERS Safety Report 21160310 (Version 5)
Quarter: 2022Q4

REPORT INFORMATION
  Report Type: Report from Study
  Country: None (occurrence: US)
  Receive Date: 20220802
  Receipt Date: 20221021
  Transmission Date: 20230113
  Serious: Yes (Other)
  Sender: FDA-Public Use
  Company Number: US-AKCEA THERAPEUTICS, INC.-2021IS001976

PATIENT
  Age: 77 Year
  Sex: Male

DRUGS (9)
  1. TEGSEDI [Suspect]
     Active Substance: INOTERSEN SODIUM
     Indication: Hereditary neuropathic amyloidosis
     Route: 058
     Dates: start: 20190419
  2. DEVICE [Suspect]
     Active Substance: DEVICE
  3. TEGSEDI [Suspect]
     Active Substance: INOTERSEN SODIUM
     Route: 058
  4. ASPIRIN [Concomitant]
     Active Substance: ASPIRIN
     Route: 065
  5. FLOMAX [Concomitant]
     Active Substance: TAMSULOSIN HYDROCHLORIDE
     Route: 065
  6. METOPROLOL SUCCINATE [Concomitant]
     Active Substance: METOPROLOL SUCCINATE
     Route: 065
  7. SPIRONOLACTONE [Concomitant]
     Active Substance: SPIRONOLACTONE
     Route: 065
  8. GREEN TEA LEAF [Concomitant]
     Active Substance: GREEN TEA LEAF
     Route: 065
  9. XARELTO [Concomitant]
     Active Substance: RIVAROXABAN
     Route: 065

REACTIONS (20)
  - Disease progression [Unknown]
  - Urine leukocyte esterase positive [Unknown]
  - Blood creatinine abnormal [Unknown]
  - Urinary casts present [Unknown]
  - Urine ketone body present [Unknown]
  - Urinary occult blood positive [Unknown]
  - Malaise [Unknown]
  - Red blood cells urine positive [Unknown]
  - Alanine aminotransferase abnormal [Unknown]
  - Urine abnormality [Unknown]
  - Urine protein/creatinine ratio increased [Unknown]
  - Bacterial test positive [Unknown]
  - Protein urine present [Unknown]
  - Glomerular filtration rate decreased [Unknown]
  - Platelet count decreased [Unknown]
  - COVID-19 [Unknown]
  - Diarrhoea [Unknown]
  - Pruritus [Unknown]
  - Bilirubin urine present [Unknown]
  - Memory impairment [Unknown]

NARRATIVE: CASE EVENT DATE: 20211213
